FAERS Safety Report 24546413 (Version 1)
Quarter: 2024Q4

REPORT INFORMATION
  Report Type: Spontaneous
  Country: CA (occurrence: CA)
  Receive Date: 20241024
  Receipt Date: 20241024
  Transmission Date: 20250115
  Serious: Yes (Life-Threatening, Hospitalization, Other)
  Sender: TEVA
  Company Number: CA-TEVA-VS-3255442

PATIENT
  Age: 12 Year
  Sex: Male

DRUGS (1)
  1. DOXORUBICIN [Suspect]
     Active Substance: DOXORUBICIN
     Indication: Osteosarcoma
     Dosage: DOXORUBICIN INJECTION, DOSE FORM: SOLUTION INTRAVENOUS
     Route: 042

REACTIONS (2)
  - Pyrexia [Recovered/Resolved]
  - Neutropenia [Recovered/Resolved]
